FAERS Safety Report 6045644-9 (Version None)
Quarter: 2009Q1

REPORT INFORMATION
  Report Type: 
  Country: None (occurrence: None)
  Receive Date: 20090121
  Receipt Date: 20090116
  Transmission Date: 20090719
  Serious: Yes (Other)
  Sender: FDA-Public Use
  Company Number: DE-ALLERGAN-0900136US

PATIENT
  Sex: Female

DRUGS (5)
  1. TRIAMCINOLONE ACETONIDE UNK SUS-EYE [Suspect]
     Indication: MACULOPATHY
     Dosage: 0.4 ML, SINGLE
     Route: 050
  2. TRIAMCINOLONE ACETONIDE UNK SUS-EYE [Suspect]
     Indication: CHOROIDAL NEOVASCULARISATION
  3. TRIAMCINOLONE ACETONIDE UNK SUS-EYE [Suspect]
     Indication: MACULAR OEDEMA
  4. TRIAMCINOLONE ACETONIDE UNK SUS-EYE [Suspect]
     Indication: MACULAR DEGENERATION
  5. ANESTHETICS, LOCAL [Concomitant]

REACTIONS (3)
  - EYEBALL RUPTURE [None]
  - IRIDOCELE [None]
  - LENS DISLOCATION [None]
